FAERS Safety Report 7067370-X (Version None)
Quarter: 2010Q4

REPORT INFORMATION
  Report Type: 
  Country: None (occurrence: None)
  Receive Date: 20101028
  Receipt Date: 20101020
  Transmission Date: 20110411
  Serious: Yes (Other)
  Sender: FDA-Public Use
  Company Number: US-RB-016686-10

PATIENT
  Age: 36 Year
  Sex: Male

DRUGS (1)
  1. SUBOXONE [Suspect]
     Indication: PRODUCT USED FOR UNKNOWN INDICATION
     Dosage: DOSING INFORMATION UNKNOWN
     Route: 065

REACTIONS (10)
  - ABNORMAL DREAMS [None]
  - DEPRESSION [None]
  - DRUG DEPENDENCE [None]
  - DYSKINESIA [None]
  - HALLUCINATION, TACTILE [None]
  - HALLUCINATION, VISUAL [None]
  - LIP SWELLING [None]
  - MOUTH INJURY [None]
  - ORAL INFECTION [None]
  - STOMATITIS [None]
